FAERS Safety Report 15424456 (Version 1)
Quarter: 2018Q3

REPORT INFORMATION
  Report Type: Report from Study
  Country: US (occurrence: US)
  Receive Date: 20180925
  Receipt Date: 20180925
  Transmission Date: 20181010
  Serious: Yes (Hospitalization)
  Sender: FDA-Public Use
  Company Number: US-BAYER-2018-152560

PATIENT
  Age: 62 Year
  Sex: Male

DRUGS (2)
  1. STIVARGA [Suspect]
     Active Substance: REGORAFENIB
     Indication: COLORECTAL CANCER
     Dosage: 160 MG, QD
     Route: 048
     Dates: start: 20180723, end: 20180820
  2. STIVARGA [Suspect]
     Active Substance: REGORAFENIB
     Indication: COLORECTAL CANCER
     Dosage: DAILY DOSE 120 MG
     Route: 048
     Dates: start: 20180828

REACTIONS (8)
  - Diabetes mellitus [None]
  - Decreased appetite [None]
  - Palmar-plantar erythrodysaesthesia syndrome [Recovered/Resolved]
  - Hypotension [None]
  - Atrial fibrillation [None]
  - Pain in extremity [None]
  - Weight decreased [None]
  - Tachycardia [None]

NARRATIVE: CASE EVENT DATE: 2018
